FAERS Safety Report 24802070 (Version 6)
Quarter: 2025Q1

REPORT INFORMATION
  Report Type: Spontaneous
  Country: HR (occurrence: HR)
  Receive Date: 20250102
  Receipt Date: 20250225
  Transmission Date: 20250409
  Serious: Yes (Other)
  Sender: CELLTRION
  Company Number: HR-HALEON-2182442

PATIENT

DRUGS (99)
  1. ADALIMUMAB [Suspect]
     Active Substance: ADALIMUMAB
     Indication: Generalised pustular psoriasis
     Route: 058
  2. ADALIMUMAB [Suspect]
     Active Substance: ADALIMUMAB
     Indication: Pustular psoriasis
     Route: 065
  3. ADALIMUMAB [Suspect]
     Active Substance: ADALIMUMAB
     Route: 065
  4. ADALIMUMAB [Suspect]
     Active Substance: ADALIMUMAB
     Route: 065
  5. ADALIMUMAB [Suspect]
     Active Substance: ADALIMUMAB
     Route: 058
  6. DICLOFENAC SODIUM [Suspect]
     Active Substance: DICLOFENAC SODIUM
     Indication: Product used for unknown indication
     Route: 065
  7. DICLOFENAC SODIUM [Suspect]
     Active Substance: DICLOFENAC SODIUM
     Route: 065
  8. DICLOFENAC SODIUM [Suspect]
     Active Substance: DICLOFENAC SODIUM
     Route: 065
  9. KETOPROFEN [Suspect]
     Active Substance: KETOPROFEN
     Indication: Product used for unknown indication
  10. KETOPROFEN [Suspect]
     Active Substance: KETOPROFEN
     Route: 016
  11. KETOPROFEN [Suspect]
     Active Substance: KETOPROFEN
     Route: 016
  12. KETOPROFEN [Suspect]
     Active Substance: KETOPROFEN
     Route: 016
  13. KETOPROFEN [Suspect]
     Active Substance: KETOPROFEN
     Route: 016
  14. KETOPROFEN [Suspect]
     Active Substance: KETOPROFEN
  15. IBUPROFEN [Suspect]
     Active Substance: IBUPROFEN
     Indication: Product used for unknown indication
     Route: 065
  16. IBUPROFEN [Suspect]
     Active Substance: IBUPROFEN
     Route: 065
  17. IBUPROFEN [Suspect]
     Active Substance: IBUPROFEN
     Route: 065
  18. IBUPROFEN [Suspect]
     Active Substance: IBUPROFEN
     Route: 065
  19. IBUPROFEN [Suspect]
     Active Substance: IBUPROFEN
     Route: 016
  20. CETIRIZINE HYDROCHLORIDE [Suspect]
     Active Substance: CETIRIZINE HYDROCHLORIDE
     Indication: Product used for unknown indication
     Route: 065
  21. ACITRETIN [Suspect]
     Active Substance: ACITRETIN
     Indication: Generalised pustular psoriasis
     Route: 065
  22. ACITRETIN [Suspect]
     Active Substance: ACITRETIN
     Indication: Pustular psoriasis
     Route: 065
  23. ACITRETIN [Suspect]
     Active Substance: ACITRETIN
     Route: 065
  24. ACITRETIN [Suspect]
     Active Substance: ACITRETIN
     Route: 065
  25. ACITRETIN [Suspect]
     Active Substance: ACITRETIN
     Route: 065
  26. ACITRETIN [Suspect]
     Active Substance: ACITRETIN
     Route: 065
  27. ACITRETIN [Suspect]
     Active Substance: ACITRETIN
     Route: 065
  28. PANTOPRAZOLE SODIUM [Suspect]
     Active Substance: PANTOPRAZOLE SODIUM
     Indication: Product used for unknown indication
     Route: 065
  29. PANTOPRAZOLE SODIUM [Suspect]
     Active Substance: PANTOPRAZOLE SODIUM
     Route: 065
  30. PANTOPRAZOLE SODIUM [Suspect]
     Active Substance: PANTOPRAZOLE SODIUM
     Route: 065
  31. PANTOPRAZOLE SODIUM [Suspect]
     Active Substance: PANTOPRAZOLE SODIUM
     Route: 065
  32. APREMILAST [Suspect]
     Active Substance: APREMILAST
     Indication: Generalised pustular psoriasis
     Route: 065
  33. APREMILAST [Suspect]
     Active Substance: APREMILAST
     Indication: Pustular psoriasis
     Route: 065
  34. APREMILAST [Suspect]
     Active Substance: APREMILAST
  35. APREMILAST [Suspect]
     Active Substance: APREMILAST
     Route: 065
  36. BILASTINE [Suspect]
     Active Substance: BILASTINE
     Indication: Product used for unknown indication
     Route: 048
  37. BILASTINE [Suspect]
     Active Substance: BILASTINE
     Route: 048
  38. BILASTINE [Suspect]
     Active Substance: BILASTINE
     Indication: Product used for unknown indication
     Route: 065
  39. BILASTINE [Suspect]
     Active Substance: BILASTINE
     Route: 048
  40. BILASTINE [Suspect]
     Active Substance: BILASTINE
     Route: 065
  41. BILASTINE [Suspect]
     Active Substance: BILASTINE
     Route: 065
  42. BILASTINE [Suspect]
     Active Substance: BILASTINE
     Route: 048
  43. DESLORATADINE [Suspect]
     Active Substance: DESLORATADINE
     Indication: Product used for unknown indication
     Route: 065
  44. DESLORATADINE [Suspect]
     Active Substance: DESLORATADINE
     Route: 065
  45. DESLORATADINE [Suspect]
     Active Substance: DESLORATADINE
     Route: 065
  46. DESLORATADINE [Suspect]
     Active Substance: DESLORATADINE
     Route: 065
  47. LORATADINE [Suspect]
     Active Substance: LORATADINE
     Indication: Product used for unknown indication
     Route: 065
  48. LORATADINE [Suspect]
     Active Substance: LORATADINE
  49. LORATADINE [Suspect]
     Active Substance: LORATADINE
     Route: 065
  50. LORATADINE [Suspect]
     Active Substance: LORATADINE
     Route: 065
  51. METHOTREXATE [Suspect]
     Active Substance: METHOTREXATE
     Indication: Generalised pustular psoriasis
     Route: 065
  52. METHOTREXATE [Suspect]
     Active Substance: METHOTREXATE
     Indication: Pustular psoriasis
     Route: 065
     Dates: start: 202005
  53. COSENTYX [Suspect]
     Active Substance: SECUKINUMAB
     Indication: Generalised pustular psoriasis
     Route: 065
  54. COSENTYX [Suspect]
     Active Substance: SECUKINUMAB
     Indication: Pustular psoriasis
     Route: 065
  55. COSENTYX [Suspect]
     Active Substance: SECUKINUMAB
     Route: 065
  56. COSENTYX [Suspect]
     Active Substance: SECUKINUMAB
     Route: 065
  57. COSENTYX [Suspect]
     Active Substance: SECUKINUMAB
     Route: 065
  58. PIOGLITAZONE [Suspect]
     Active Substance: PIOGLITAZONE
     Indication: Product used for unknown indication
     Route: 065
  59. PIOGLITAZONE [Suspect]
     Active Substance: PIOGLITAZONE
     Route: 065
  60. PIOGLITAZONE [Suspect]
     Active Substance: PIOGLITAZONE
     Route: 065
  61. PIOGLITAZONE [Suspect]
     Active Substance: PIOGLITAZONE
  62. PIOGLITAZONE [Suspect]
     Active Substance: PIOGLITAZONE
  63. PIOGLITAZONE [Suspect]
     Active Substance: PIOGLITAZONE
  64. BILASTINE [Suspect]
     Active Substance: BILASTINE
     Indication: Product used for unknown indication
     Route: 048
  65. BILASTINE [Suspect]
     Active Substance: BILASTINE
     Route: 048
  66. BILASTINE [Suspect]
     Active Substance: BILASTINE
     Route: 048
  67. BILASTINE [Suspect]
     Active Substance: BILASTINE
     Route: 065
  68. BILASTINE [Suspect]
     Active Substance: BILASTINE
     Route: 065
  69. BILASTINE [Suspect]
     Active Substance: BILASTINE
     Route: 065
  70. CETIRIZINE HYDROCHLORIDE [Suspect]
     Active Substance: CETIRIZINE HYDROCHLORIDE
     Indication: Product used for unknown indication
     Route: 065
  71. CETIRIZINE HYDROCHLORIDE [Suspect]
     Active Substance: CETIRIZINE HYDROCHLORIDE
     Route: 065
  72. CEFATRIZINE [Suspect]
     Active Substance: CEFATRIZINE
     Indication: Product used for unknown indication
     Route: 065
  73. DESLORATADINE [Suspect]
     Active Substance: DESLORATADINE
     Indication: Product used for unknown indication
     Route: 065
  74. DESLORATADINE [Suspect]
     Active Substance: DESLORATADINE
     Route: 065
  75. DESLORATADINE [Suspect]
     Active Substance: DESLORATADINE
     Indication: Product used for unknown indication
  76. IBUPROFEN SODIUM [Suspect]
     Active Substance: IBUPROFEN SODIUM
     Indication: Product used for unknown indication
     Route: 065
  77. KETOPROFEN LYSINE [Suspect]
     Active Substance: KETOPROFEN LYSINE
     Indication: Product used for unknown indication
     Route: 016
  78. METHOTREXATE SODIUM [Suspect]
     Active Substance: METHOTREXATE SODIUM
     Indication: Generalised pustular psoriasis
     Route: 065
     Dates: start: 202005
  79. METHYLPREDNISOLONE [Suspect]
     Active Substance: METHYLPREDNISOLONE
     Indication: Generalised pustular psoriasis
     Route: 065
     Dates: start: 202008
  80. METHYLPREDNISOLONE [Suspect]
     Active Substance: METHYLPREDNISOLONE
     Indication: Pustular psoriasis
     Route: 065
     Dates: start: 202008
  81. METHYLPREDNISOLONE [Suspect]
     Active Substance: METHYLPREDNISOLONE
     Route: 065
  82. METHYLPREDNISOLONE [Suspect]
     Active Substance: METHYLPREDNISOLONE
     Route: 065
  83. PIOGLITAZONE HYDROCHLORIDE [Suspect]
     Active Substance: PIOGLITAZONE HYDROCHLORIDE
     Indication: Product used for unknown indication
     Route: 065
  84. PIOGLITAZONE HYDROCHLORIDE [Suspect]
     Active Substance: PIOGLITAZONE HYDROCHLORIDE
     Route: 065
  85. PIOGLITAZONE HYDROCHLORIDE [Suspect]
     Active Substance: PIOGLITAZONE HYDROCHLORIDE
     Route: 065
  86. PIOGLITAZONE HYDROCHLORIDE [Suspect]
     Active Substance: PIOGLITAZONE HYDROCHLORIDE
  87. PIOGLITAZONE HYDROCHLORIDE [Suspect]
     Active Substance: PIOGLITAZONE HYDROCHLORIDE
  88. PIOGLITAZONE HYDROCHLORIDE [Suspect]
     Active Substance: PIOGLITAZONE HYDROCHLORIDE
  89. RISANKIZUMAB [Suspect]
     Active Substance: RISANKIZUMAB
     Indication: Generalised pustular psoriasis
     Route: 065
  90. RISANKIZUMAB [Suspect]
     Active Substance: RISANKIZUMAB
     Indication: Pustular psoriasis
     Route: 065
     Dates: start: 201912
  91. RISANKIZUMAB [Suspect]
     Active Substance: RISANKIZUMAB
     Route: 058
     Dates: start: 201912
  92. RISANKIZUMAB [Suspect]
     Active Substance: RISANKIZUMAB
     Route: 065
     Dates: start: 201912
  93. RISANKIZUMAB [Suspect]
     Active Substance: RISANKIZUMAB
     Route: 065
  94. RISANKIZUMAB [Suspect]
     Active Substance: RISANKIZUMAB
     Route: 058
  95. RISANKIZUMAB [Suspect]
     Active Substance: RISANKIZUMAB
     Route: 058
  96. RISANKIZUMAB [Suspect]
     Active Substance: RISANKIZUMAB
     Route: 058
  97. METHYLPREDNISOLONE [Suspect]
     Active Substance: METHYLPREDNISOLONE
     Indication: Pustular psoriasis
     Route: 065
  98. COSENTYX [Concomitant]
     Active Substance: SECUKINUMAB
     Indication: Generalised pustular psoriasis
     Route: 065
  99. COSENTYX [Concomitant]
     Active Substance: SECUKINUMAB
     Indication: Pustular psoriasis

REACTIONS (16)
  - Inflammatory bowel disease [Recovered/Resolved]
  - Faecal calprotectin increased [Unknown]
  - Myalgia [Unknown]
  - Diarrhoea [Recovered/Resolved]
  - Face oedema [Unknown]
  - Fatigue [Unknown]
  - Asthenia [Unknown]
  - Erythema [Recovering/Resolving]
  - Weight decreased [Recovering/Resolving]
  - Urticaria [Unknown]
  - Urticaria [Unknown]
  - Arthralgia [Unknown]
  - Drug ineffective [Unknown]
  - Product use in unapproved indication [Unknown]
  - Off label use [Unknown]
  - Intentional product use issue [Unknown]

NARRATIVE: CASE EVENT DATE: 20191101
